FAERS Safety Report 7900626-4 (Version None)
Quarter: 2011Q4

REPORT INFORMATION
  Report Type: 
  Country: None (occurrence: None)
  Receive Date: 20111108
  Receipt Date: 20111031
  Transmission Date: 20120403
  Serious: Yes (Other)
  Sender: FDA-Public Use
  Company Number: FR-JNJFOC-20111012867

PATIENT

DRUGS (23)
  1. DOXORUBICIN HCL [Suspect]
     Route: 042
  2. ELDISINE [Suspect]
     Route: 065
  3. CYCLOPHOSPHAMIDE [Suspect]
     Route: 065
  4. MESNA [Suspect]
     Route: 042
  5. ELDISINE [Suspect]
     Indication: LYMPHOMA
     Route: 065
  6. ELDISINE [Suspect]
     Route: 065
  7. NEUPOGEN [Concomitant]
     Route: 065
  8. DOXORUBICIN HCL [Suspect]
     Indication: LYMPHOMA
     Route: 042
  9. MESNA [Suspect]
     Route: 042
  10. MESNA [Suspect]
     Route: 042
  11. ELDISINE [Suspect]
     Route: 065
  12. BLEOMYCIN SULFATE [Suspect]
     Route: 042
  13. METHOTREXATE [Suspect]
     Indication: LYMPHOMA
     Route: 037
  14. DOXORUBICIN HCL [Suspect]
     Route: 042
  15. CYCLOPHOSPHAMIDE [Suspect]
     Indication: LYMPHOMA
     Route: 065
  16. CYCLOPHOSPHAMIDE [Suspect]
     Route: 065
  17. BLEOMYCIN SULFATE [Suspect]
     Indication: LYMPHOMA
     Route: 042
  18. BLEOMYCIN SULFATE [Suspect]
     Route: 042
  19. BLEOMYCIN SULFATE [Suspect]
     Route: 042
  20. CYCLOPHOSPHAMIDE [Suspect]
     Route: 065
  21. DOXORUBICIN HCL [Suspect]
     Route: 042
  22. MESNA [Suspect]
     Indication: LYMPHOMA
     Route: 042
  23. PREDNISONE [Suspect]
     Indication: LYMPHOMA
     Route: 048

REACTIONS (1)
  - HEPATOTOXICITY [None]
